FAERS Safety Report 9688954 (Version 1)
Quarter: 2013Q4

REPORT INFORMATION
  Report Type: Spontaneous
  Country: AR (occurrence: None)
  Receive Date: 20131112
  Receipt Date: 20131112
  Transmission Date: 20140711
  Serious: Yes (Other)
  Sender: FDA-Public Use
  Company Number: VAL_02815_2013

PATIENT
  Sex: Female

DRUGS (1)
  1. BASOFORTINA [Suspect]
     Indication: MENOPAUSAL SYMPTOMS
     Route: 048
     Dates: start: 201308, end: 20131024

REACTIONS (1)
  - Haemorrhage [None]
